FAERS Safety Report 4343918-0 (Version None)
Quarter: 2004Q2

REPORT INFORMATION
  Report Type: 
  Country: None (occurrence: None)
  Receive Date: 20040419
  Receipt Date: 20040401
  Transmission Date: 20050107
  Serious: No
  Sender: FDA-Public Use
  Company Number: RB-612-2004

PATIENT
  Sex: Female

DRUGS (2)
  1. SUBOXONE [Suspect]
  2. SUBUTEX [Suspect]

REACTIONS (3)
  - ABORTION [None]
  - COMPLICATIONS OF MATERNAL EXPOSURE TO THERAPEUTIC DRUGS [None]
  - DRUG EXPOSURE DURING PREGNANCY [None]
